FAERS Safety Report 8988604 (Version 1)
Quarter: 2012Q4

REPORT INFORMATION
  Report Type: Spontaneous
  Country: US (occurrence: None)
  Receive Date: 20121218
  Receipt Date: 20121218
  Transmission Date: 20130627
  Serious: Yes (Death, Other)
  Sender: FDA-Public Use
  Company Number: AUR-APL-2012-05375

PATIENT
  Age: 56 Year
  Sex: Female

DRUGS (8)
  1. CITALOPRAM (CITALOPRAM) [Suspect]
     Indication: DRUG USE FOR UNKNOWN INDICATION
  2. ZOLPIDEM [Suspect]
     Indication: DRUG USE FOR UNKNOWN INDICATION
  3. CARISOPRODOL (CARISOPRODOL) [Suspect]
     Indication: DRUG USE FOR UNKNOWN INDICATION
  4. TRAMADOL (TRAMADOL) [Suspect]
     Indication: DRUG USE FOR UNKNOWN INDICATION
  5. TEMAZEPAM (TEMAZEPAM) [Suspect]
     Indication: DRUG USE FOR UNKNOWN INDICATION
  6. BUTALBITAL (BUTALBITAL) [Suspect]
     Indication: DRUG USE FOR UNKNOWN INDICATION
  7. DIPHENHYDRAMINE [Suspect]
     Indication: DRUG USE FOR UNKNOWN INDICATION
  8. HYDROCODONE [Suspect]
     Indication: DRUG USE FOR UNKNOWN INDICATION

REACTIONS (2)
  - Completed suicide [None]
  - Toxicity to various agents [None]
